FAERS Safety Report 23423510 (Version 2)
Quarter: 2024Q1

REPORT INFORMATION
  Report Type: Spontaneous
  Country: US (occurrence: US)
  Receive Date: 20240119
  Receipt Date: 20240212
  Transmission Date: 20240410
  Serious: Yes (Other)
  Sender: FDA-Public Use
  Company Number: US-BAUSCHBL-2024BNL000580

PATIENT
  Age: 65 Year
  Sex: Female
  Weight: 82.5 kg

DRUGS (5)
  1. MIEBO [Suspect]
     Active Substance: PERFLUOROHEXYLOCTANE
     Indication: Dry eye
     Dosage: ONE DROP TWICE A DAY IN BOTH EYES
     Route: 047
     Dates: start: 20231205, end: 20240109
  2. RESTASIS [Concomitant]
     Active Substance: CYCLOSPORINE
     Indication: Product used for unknown indication
  3. PREDNISONE ACETATE [Concomitant]
     Active Substance: PREDNISONE ACETATE
     Indication: Product used for unknown indication
     Route: 047
  4. KETOROLAC [Concomitant]
     Active Substance: KETOROLAC TROMETHAMINE
     Indication: Product used for unknown indication
  5. OFLOXACIN [Concomitant]
     Active Substance: OFLOXACIN
     Indication: Product used for unknown indication

REACTIONS (5)
  - Appendicectomy [Unknown]
  - Product use issue [Unknown]
  - Product delivery mechanism issue [Unknown]
  - Prescribed underdose [Unknown]
  - Wrong dose [Unknown]

NARRATIVE: CASE EVENT DATE: 20231201
